FAERS Safety Report 23860851 (Version 2)
Quarter: 2024Q3

REPORT INFORMATION
  Report Type: Spontaneous
  Country: IT (occurrence: IT)
  Receive Date: 20240516
  Receipt Date: 20240731
  Transmission Date: 20241017
  Serious: Yes (Hospitalization)
  Sender: CHEPLAPHARM
  Company Number: None

PATIENT
  Age: 26 Year
  Sex: Female

DRUGS (5)
  1. OLANZAPINE [Suspect]
     Active Substance: OLANZAPINE
     Dosage: TWICE DAILY?DAILY DOSE: 5 DOSAGE FORM
     Route: 048
     Dates: start: 20240409
  2. PAROXETINE [Suspect]
     Active Substance: PAROXETINE
     Dosage: DAILY DOSE: 10 MILLIGRAM
     Route: 048
     Dates: start: 20240405, end: 20240424
  3. DULOXETINE [Suspect]
     Active Substance: DULOXETINE
     Dosage: DAILY DOSE: 30 MILLIGRAM
     Route: 048
     Dates: start: 20240424, end: 20240501
  4. Clexaine [Concomitant]
     Dosage: PRE-FILLED SYRINGE?DAILY DOSE: 2000 IU (INTERNATIONAL UNIT)
     Route: 058
  5. LYRICA [Concomitant]
     Active Substance: PREGABALIN
     Dosage: DAILY DOSE: 25 MILLIGRAM
     Route: 048

REACTIONS (1)
  - Liver disorder [Recovered/Resolved]

NARRATIVE: CASE EVENT DATE: 20240422
